FAERS Safety Report 22061062 (Version 4)
Quarter: 2023Q2

REPORT INFORMATION
  Report Type: Report from Study
  Country: KR (occurrence: None)
  Receive Date: 20230303
  Receipt Date: 20230511
  Transmission Date: 20230721
  Serious: Yes (Hospitalization)
  Sender: FDA-Public Use
  Company Number: KR-Eisai Medical Research-EC-2023-135454

PATIENT
  Age: 54 Year
  Sex: Male
  Weight: 76.2 kg

DRUGS (9)
  1. LENVATINIB [Suspect]
     Active Substance: LENVATINIB
     Indication: Squamous cell carcinoma of head and neck
     Route: 048
     Dates: start: 20220727, end: 20221018
  2. LENVATINIB [Suspect]
     Active Substance: LENVATINIB
     Dosage: STARTING DOSAGE AT 14; FLUCTUATED DOSAGE
     Route: 048
     Dates: start: 20221026
  3. PEMBROLIZUMAB [Suspect]
     Active Substance: PEMBROLIZUMAB
     Indication: Squamous cell carcinoma of head and neck
     Route: 041
     Dates: start: 20220727, end: 20220928
  4. PEMBROLIZUMAB [Suspect]
     Active Substance: PEMBROLIZUMAB
     Route: 041
     Dates: start: 20221026
  5. CELLMISTAR [Concomitant]
     Dates: start: 202111, end: 20221205
  6. DINAC [DICLOFENAC SODIUM] [Concomitant]
     Dates: start: 20221010, end: 20221015
  7. AMOXICLE [Concomitant]
     Dates: start: 20221010, end: 20221015
  8. DICLOFENAC [Concomitant]
     Active Substance: DICLOFENAC
     Route: 061
     Dates: start: 20220831, end: 20221018
  9. SYNTHROID [Concomitant]
     Active Substance: LEVOTHYROXINE SODIUM
     Dates: start: 202207

REACTIONS (1)
  - Osteonecrosis of jaw [Recovered/Resolved]

NARRATIVE: CASE EVENT DATE: 20221019
